FAERS Safety Report 7272489-4 (Version None)
Quarter: 2011Q1

REPORT INFORMATION
  Report Type: 
  Country: None (occurrence: None)
  Receive Date: 20110203
  Receipt Date: 20110126
  Transmission Date: 20110831
  Serious: Yes (Hospitalization)
  Sender: FDA-Public Use
  Company Number: US-ROCHE-708641

PATIENT
  Sex: Female
  Weight: 87.7 kg

DRUGS (10)
  1. LANTUS [Concomitant]
  2. GABAPENTIN [Concomitant]
  3. MICARDIS [Concomitant]
  4. GLIPIZIDE [Concomitant]
  5. CELEBREX [Concomitant]
  6. LASIX [Concomitant]
  7. BONIVA [Suspect]
     Indication: OSTEOPENIA
     Dosage: FORM:PILL
     Route: 048
     Dates: start: 20100601
  8. LIPITOR [Concomitant]
  9. COUMADIN [Concomitant]
  10. JANUMET [Concomitant]

REACTIONS (4)
  - DEHYDRATION [None]
  - CHEST PAIN [None]
  - BACK PAIN [None]
  - DIARRHOEA [None]
